FAERS Safety Report 23529395 (Version 3)
Quarter: 2024Q1

REPORT INFORMATION
  Report Type: Spontaneous
  Country: CL (occurrence: CL)
  Receive Date: 20240216
  Receipt Date: 20240305
  Transmission Date: 20240410
  Serious: Yes (Hospitalization)
  Sender: FDA-Public Use
  Company Number: CL-BIOGEN-2024BI01250082

PATIENT
  Age: 6 Year
  Sex: Male

DRUGS (19)
  1. SPINRAZA [Suspect]
     Active Substance: NUSINERSEN
     Indication: Spinal muscular atrophy
     Dosage: LAST APPLICATION ON 07-FEB-2024?INJECTION NUMBER 19TH (15TH MAINTENANCE DOSE)
     Route: 050
     Dates: start: 20191205
  2. SPINRAZA [Suspect]
     Active Substance: NUSINERSEN
     Route: 050
     Dates: start: 20191205
  3. SPINRAZA [Suspect]
     Active Substance: NUSINERSEN
     Route: 050
     Dates: start: 20191205
  4. LEVETIRACETAM [Concomitant]
     Active Substance: LEVETIRACETAM
     Indication: Product used for unknown indication
     Dosage: 60MG/KG/DAY
     Route: 050
  5. ENALAPRIL [Concomitant]
     Active Substance: ENALAPRIL
     Indication: Product used for unknown indication
     Dosage: 2 MG/ML
     Route: 050
  6. ENALAPRIL [Concomitant]
     Active Substance: ENALAPRIL
     Dosage: 1 MILLIGRAM/MILLILITER
     Route: 050
  7. FLUTICASONE PROPIONATE\SALMETEROL XINAFOATE [Concomitant]
     Active Substance: FLUTICASONE PROPIONATE\SALMETEROL XINAFOATE
     Indication: Product used for unknown indication
     Dosage: PUFF
     Route: 050
  8. FLUTICASONE [Concomitant]
     Active Substance: FLUTICASONE
     Indication: Product used for unknown indication
     Dosage: INTRANASAL- PUFFS, TWO EVERY 12 HOURS IN EACH NOSTRIL
     Route: 050
  9. ALBUTEROL [Concomitant]
     Active Substance: ALBUTEROL
     Indication: Product used for unknown indication
     Dosage: PUFF- 4 PUFFS EVERY 6 HOURS PER TCT CIRCUIT
     Route: 050
  10. DESLORATADINE [Concomitant]
     Active Substance: DESLORATADINE
     Indication: Product used for unknown indication
     Dosage: 5 CC AT NIGHT
     Route: 050
  11. POLYETHYLENE GLYCOL [Concomitant]
     Active Substance: POLYETHYLENE GLYCOL
     Indication: Product used for unknown indication
     Dosage: (IN 100CC OF MILK)?(DISCONTINUE IF DIARRHEA)
     Route: 050
  12. HYDROXYZINE [Concomitant]
     Active Substance: HYDROXYZINE HYDROCHLORIDE
     Indication: Product used for unknown indication
     Dosage: 1 ML AT NIGHT
     Route: 050
  13. VITAMIN D [Concomitant]
     Active Substance: VITAMIN D NOS
     Indication: Product used for unknown indication
     Dosage: 800 IU (INTERNATIONAL UNIT) - 5 DROPS
     Route: 050
  14. systane ultra plus [Concomitant]
     Indication: Product used for unknown indication
     Route: 050
  15. THEALOZ DUO GEL [Concomitant]
     Indication: Product used for unknown indication
     Dosage: 1 DROP IN EACH EYE WHEN SLEEPING
     Route: 050
  16. aquadran [Concomitant]
     Indication: Product used for unknown indication
     Dosage: 1 DROP IN EACH EYE SOS RED EYE
     Route: 050
  17. ACETAMINOPHEN [Concomitant]
     Active Substance: ACETAMINOPHEN
     Indication: Pyrexia
     Dosage: THROUGH GASTROSTOMY IN CASE OF FEVER OR PAIN
     Route: 050
  18. KETOTIFEN [Concomitant]
     Active Substance: KETOTIFEN
     Indication: Product used for unknown indication
     Dosage: 1 DROP EACH EYE EVERY 12 HOURS- 0.025%
     Route: 050
  19. MELATONIN [Concomitant]
     Active Substance: MELATONIN
     Indication: Product used for unknown indication
     Dosage: 3 MG AT 8:00 P.M
     Route: 050

REACTIONS (5)
  - Cerebrospinal fluid leakage [Recovered/Resolved]
  - Post procedural swelling [Recovered/Resolved]
  - Procedural complication [Recovered/Resolved]
  - Post procedural inflammation [Recovered/Resolved]
  - Lordosis [Unknown]

NARRATIVE: CASE EVENT DATE: 20240207
